FAERS Safety Report 4649172-4 (Version None)
Quarter: 2005Q2

REPORT INFORMATION
  Report Type: 
  Country: None (occurrence: None)
  Receive Date: 20050427
  Receipt Date: 20050407
  Transmission Date: 20051028
  Serious: Yes (Death)
  Sender: FDA-Public Use
  Company Number: USA050495418

PATIENT
  Sex: Female

DRUGS (3)
  1. CYMBALTA [Suspect]
     Dosage: 60 MG
     Dates: start: 20050201
  2. TRAZODONE HCL [Concomitant]
  3. CAMPRAL (ACAMPROSATE CALCUM) [Concomitant]

REACTIONS (1)
  - SUDDEN DEATH [None]
